FAERS Safety Report 9375535 (Version 3)
Quarter: 2015Q3

REPORT INFORMATION
  Report Type: Spontaneous
  Country: US (occurrence: US)
  Receive Date: 20130628
  Receipt Date: 20150708
  Transmission Date: 20151125
  Serious: Yes (Other)
  Sender: FDA-Public Use
  Company Number: US-ASTRAZENECA-2013SE49186

PATIENT
  Age: 968 Month
  Sex: Female
  Weight: 52.2 kg

DRUGS (7)
  1. FASLODEX [Suspect]
     Active Substance: FULVESTRANT
     Indication: BREAST CANCER METASTATIC
     Route: 030
     Dates: start: 201008
  2. FASLODEX [Suspect]
     Active Substance: FULVESTRANT
     Indication: BREAST CANCER
     Route: 030
     Dates: start: 201008
  3. AMLODIPINE [Concomitant]
     Active Substance: AMLODIPINE BESYLATE
     Indication: HYPERTENSION
  4. TAMOXIFEN [Suspect]
     Active Substance: TAMOXIFEN
     Indication: BREAST CANCER
     Route: 048
     Dates: start: 2008, end: 201008
  5. CREON 10 MINIMICROSPHERES [Concomitant]
     Active Substance: PANCRELIPASE AMYLASE\PANCRELIPASE LIPASE\PANCRELIPASE PROTEASE
     Indication: DYSPEPSIA
     Dosage: BID
  6. CREON 10 MINIMICROSPHERES [Concomitant]
     Active Substance: PANCRELIPASE AMYLASE\PANCRELIPASE LIPASE\PANCRELIPASE PROTEASE
     Indication: DYSPEPSIA
     Dosage: BID
  7. AMLODIPINE [Concomitant]
     Active Substance: AMLODIPINE BESYLATE
     Indication: BLOOD PRESSURE ABNORMAL

REACTIONS (15)
  - Abdominal discomfort [Recovered/Resolved]
  - Myalgia [Recovered/Resolved with Sequelae]
  - Musculoskeletal chest pain [Not Recovered/Not Resolved]
  - Off label use [Not Recovered/Not Resolved]
  - Dyspepsia [Unknown]
  - Fracture [Unknown]
  - Diplopia [Not Recovered/Not Resolved]
  - Flatulence [Unknown]
  - Gastric disorder [Unknown]
  - Neoplasm malignant [Unknown]
  - Bone pain [Recovered/Resolved with Sequelae]
  - Photosensitivity reaction [Recovered/Resolved]
  - Osteoporosis [Unknown]
  - Body height decreased [Unknown]
  - Hot flush [Recovered/Resolved]

NARRATIVE: CASE EVENT DATE: 201008
